FAERS Safety Report 8043512-4 (Version None)
Quarter: 2012Q1

REPORT INFORMATION
  Report Type: 
  Country: None (occurrence: None)
  Receive Date: 20120112
  Receipt Date: 20120109
  Transmission Date: 20120608
  Serious: Yes (Death, Other)
  Sender: FDA-Public Use
  Company Number: US-PFIZER INC-2010172959

PATIENT
  Sex: Female

DRUGS (1)
  1. LYRICA [Suspect]
     Dosage: UNK

REACTIONS (11)
  - DRUG INEFFECTIVE [None]
  - DEATH [None]
  - URINARY INCONTINENCE [None]
  - RASH [None]
  - FIBROMYALGIA [None]
  - MYALGIA [None]
  - AMNESIA [None]
  - ARTHRITIS [None]
  - MUSCULOSKELETAL DISCOMFORT [None]
  - PAIN [None]
  - BACK DISORDER [None]
